FAERS Safety Report 5104870-3 (Version None)
Quarter: 2006Q3

REPORT INFORMATION
  Report Type: 
  Country: None (occurrence: None)
  Receive Date: 20060914
  Receipt Date: 20060911
  Transmission Date: 20061208
  Serious: Yes (Hospitalization)
  Sender: FDA-Public Use
  Company Number: SE-GLAXOSMITHKLINE-B0438157A

PATIENT
  Age: 40 Year
  Sex: Male

DRUGS (3)
  1. COMBIVIR [Suspect]
     Indication: VIRAL INFECTION
     Route: 048
     Dates: start: 20040101
  2. VIREAD [Suspect]
     Indication: VIRAL INFECTION
     Dosage: 245MG PER DAY
     Route: 048
     Dates: start: 20040101
  3. KALETRA [Suspect]
     Indication: VIRAL INFECTION
     Route: 048
     Dates: start: 20040101

REACTIONS (6)
  - DIARRHOEA [None]
  - FAECES DISCOLOURED [None]
  - HAEMATEMESIS [None]
  - HAEMORRHAGE [None]
  - HIATUS HERNIA [None]
  - OESOPHAGEAL ULCER [None]
